FAERS Safety Report 24439625 (Version 1)
Quarter: 2024Q4

REPORT INFORMATION
  Report Type: Other
  Country: JP (occurrence: JP)
  Receive Date: 20241015
  Receipt Date: 20241015
  Transmission Date: 20250114
  Serious: Yes (Hospitalization, Disabling)
  Sender: B BRAUN
  Company Number: JP-B.Braun Medical Inc.-2163086

PATIENT
  Age: 55 Year
  Sex: Male

DRUGS (4)
  1. CEFAZOLIN SODIUM [Suspect]
     Active Substance: CEFAZOLIN SODIUM
  2. CEFEPIME [Suspect]
     Active Substance: CEFEPIME HYDROCHLORIDE
  3. VANCOMYCIN [Suspect]
     Active Substance: VANCOMYCIN
  4. MEROPENEM [Suspect]
     Active Substance: MEROPENEM

REACTIONS (1)
  - Drug ineffective [Unknown]
